FAERS Safety Report 19973549 (Version 1)
Quarter: 2021Q4

REPORT INFORMATION
  Report Type: Other
  Country: CO (occurrence: US)
  Receive Date: 20211020
  Receipt Date: 20211020
  Transmission Date: 20220303
  Serious: Yes (Hospitalization)
  Sender: FDA-Public Use
  Company Number: US-BIOLOGICAL E. LTD-2120785

PATIENT
  Age: 13 Year
  Sex: Male
  Weight: 64 kg

DRUGS (2)
  1. NEOSTIGMINE METHYLSULFATE [Suspect]
     Active Substance: NEOSTIGMINE METHYLSULFATE
     Indication: Neuromuscular blockade
     Route: 065
  2. ATROPINE [Suspect]
     Active Substance: ATROPINE
     Route: 065

REACTIONS (2)
  - Cholinergic syndrome [Recovered/Resolved]
  - Pulmonary oedema [Recovered/Resolved]
